FAERS Safety Report 8041464-4 (Version None)
Quarter: 2012Q1

REPORT INFORMATION
  Report Type: 
  Country: None (occurrence: None)
  Receive Date: 20120112
  Receipt Date: 20120109
  Transmission Date: 20120608
  Serious: Yes (Hospitalization, Other)
  Sender: FDA-Public Use
  Company Number: US-PFIZER INC-2011049537

PATIENT
  Sex: Female

DRUGS (1)
  1. CHANTIX [Suspect]
     Indication: SMOKING CESSATION THERAPY
     Dosage: 0.5 MG AND 1 MG , UNK
     Dates: start: 20071101, end: 20080301

REACTIONS (12)
  - FALL [None]
  - SUICIDE ATTEMPT [None]
  - BACK PAIN [None]
  - PARANOIA [None]
  - SUICIDAL IDEATION [None]
  - DELUSION [None]
  - ANXIETY [None]
  - ARTHRALGIA [None]
  - CONVULSION [None]
  - INTENTIONAL OVERDOSE [None]
  - MENTAL STATUS CHANGES [None]
  - DEPRESSION [None]
